FAERS Safety Report 17545131 (Version 1)
Quarter: 2020Q1

REPORT INFORMATION
  Report Type: Spontaneous
  Country: US (occurrence: US)
  Receive Date: 20200313
  Receipt Date: 20200313
  Transmission Date: 20200409
  Serious: Yes (Hospitalization)
  Sender: FDA-Public Use
  Company Number: None

PATIENT
  Age: 66 Year
  Sex: Male

DRUGS (11)
  1. OMEGA 3 [Concomitant]
     Active Substance: OMEGA-3 FATTY ACIDS
  2. DIGITEK [Concomitant]
     Active Substance: DIGOXIN
  3. EPLERENONE. [Concomitant]
     Active Substance: EPLERENONE
  4. COQ10 [Concomitant]
     Active Substance: UBIDECARENONE
  5. JANTOVEN [Concomitant]
     Active Substance: WARFARIN SODIUM
  6. SILDENAFIL. [Suspect]
     Active Substance: SILDENAFIL
     Indication: PULMONARY ARTERIAL HYPERTENSION
     Route: 048
     Dates: start: 20190604
  7. VALSARTAN. [Concomitant]
     Active Substance: VALSARTAN
  8. VITAMINS NOS [Concomitant]
     Active Substance: VITAMINS
  9. MULTI VITAMIN TAB [Concomitant]
  10. CITRACAL [Concomitant]
     Active Substance: CALCIUM CITRATE
  11. AMIODARONE [Concomitant]
     Active Substance: AMIODARONE

REACTIONS (1)
  - Therapy cessation [None]

NARRATIVE: CASE EVENT DATE: 20200302
